FAERS Safety Report 5552951-2 (Version None)
Quarter: 2007Q4

REPORT INFORMATION
  Report Type: 
  Country: None (occurrence: None)
  Receive Date: 20071212
  Receipt Date: 20070702
  Transmission Date: 20080405
  Serious: No
  Sender: FDA-Public Use
  Company Number: US-AMGEN-KDL229742

PATIENT
  Sex: Male
  Weight: 112.6 kg

DRUGS (1)
  1. ENBREL [Suspect]
     Indication: ANKYLOSING SPONDYLITIS
     Route: 058
     Dates: start: 20061004

REACTIONS (3)
  - ASTHMA [None]
  - NERVE COMPRESSION [None]
  - RED BLOOD CELL SEDIMENTATION RATE INCREASED [None]
